FAERS Safety Report 18919190 (Version 2)
Quarter: 2021Q1

REPORT INFORMATION
  Report Type: Report from Study
  Country: MX (occurrence: MX)
  Receive Date: 20210220
  Receipt Date: 20210226
  Transmission Date: 20210420
  Serious: Yes (Death)
  Sender: FDA-Public Use
  Company Number: NVSC2021MX039695

PATIENT
  Age: 88 Year
  Sex: Male
  Weight: 82 kg

DRUGS (3)
  1. GALVUS MET [Suspect]
     Active Substance: METFORMIN HYDROCHLORIDE\VILDAGLIPTIN
     Indication: DIABETES MELLITUS
     Dosage: 1 DF, BID (50/500 MG); (STARTED: 1 YEAR AGO)
     Route: 048
     Dates: end: 202101
  2. GALVUS MET [Suspect]
     Active Substance: METFORMIN HYDROCHLORIDE\VILDAGLIPTIN
     Dosage: 1 DF, BID, (50/850 MG) (STOPPED 15 DAYS BEFORE PASSING AWAY)
     Route: 048
     Dates: start: 202101
  3. DIOVAN [Suspect]
     Active Substance: VALSARTAN
     Indication: HYPERTENSION
     Dosage: 1 DF, QD (80 MG)
     Route: 048
     Dates: start: 202006

REACTIONS (2)
  - Coronavirus infection [Fatal]
  - Blood glucose abnormal [Unknown]

NARRATIVE: CASE EVENT DATE: 20210124
